FAERS Safety Report 4364525-X (Version None)
Quarter: 2004Q2

REPORT INFORMATION
  Report Type: 
  Country: None (occurrence: None)
  Receive Date: 20040521
  Receipt Date: 20040506
  Transmission Date: 20050107
  Serious: Yes (Disabling, Congenital Anomaly)
  Sender: FDA-Public Use
  Company Number: 2004SP000097

PATIENT
  Sex: Male

DRUGS (1)
  1. XOPENEX [Suspect]
     Dosage: 0.31 MG; 3 TIMES A DAY; INHALATION
     Route: 055
     Dates: start: 20010901, end: 20011201

REACTIONS (2)
  - CONGENITAL CLEFT HAND [None]
  - DRUG EXPOSURE DURING PREGNANCY [None]
